FAERS Safety Report 11517432 (Version 2)
Quarter: 2015Q4

REPORT INFORMATION
  Report Type: Spontaneous
  Country: GB (occurrence: GB)
  Receive Date: 20150917
  Receipt Date: 20151005
  Transmission Date: 20160304
  Serious: Yes (Other)
  Sender: FDA-Public Use
  Company Number: GB-PFIZER INC-2015303338

PATIENT
  Age: 39 Year
  Sex: Female
  Weight: 90 kg

DRUGS (5)
  1. FENOFIBRATE MICRO [Concomitant]
     Active Substance: FENOFIBRATE
     Dosage: 200 MG
  2. LEVOTHYROXINE SODIUM. [Concomitant]
     Active Substance: LEVOTHYROXINE SODIUM
     Dosage: UNK
  3. VENLAFAXINE [Concomitant]
     Active Substance: VENLAFAXINE HYDROCHLORIDE
     Indication: PREMENSTRUAL SYNDROME
     Dosage: 150 MG
  4. SYNAREL [Suspect]
     Active Substance: NAFARELIN ACETATE
     Indication: PREMENSTRUAL SYNDROME
     Dosage: 2 DF, 1X/DAY
     Route: 045
     Dates: start: 20140127, end: 20140424
  5. SODIUM VALPROATE [Concomitant]
     Active Substance: VALPROATE SODIUM
     Indication: PREMENSTRUAL SYNDROME
     Dosage: 200 MG

REACTIONS (8)
  - Irritability [Recovered/Resolved with Sequelae]
  - Condition aggravated [Recovered/Resolved with Sequelae]
  - Anxiety [Recovered/Resolved with Sequelae]
  - Crying [Recovered/Resolved with Sequelae]
  - Drug ineffective for unapproved indication [Recovered/Resolved]
  - Hot flush [Recovered/Resolved with Sequelae]
  - Depression [Recovered/Resolved with Sequelae]
  - Mood swings [Recovered/Resolved with Sequelae]

NARRATIVE: CASE EVENT DATE: 20140127
